FAERS Safety Report 7862766-8 (Version None)
Quarter: 2011Q4

REPORT INFORMATION
  Report Type: 
  Country: None (occurrence: None)
  Receive Date: 20111026
  Receipt Date: 20111017
  Transmission Date: 20120403
  Serious: Yes (Death)
  Sender: FDA-Public Use
  Company Number: 1000024858

PATIENT
  Age: 89 Year
  Sex: Male

DRUGS (5)
  1. LIPO-OFF (SIMVASTATIN) [Concomitant]
  2. MAGMITT (MAGNESIUM OXIDE) [Concomitant]
  3. MEMANTINE HYDROCHLORIDE [Suspect]
     Indication: DEMENTIA ALZHEIMER'S TYPE
     Dosage: SEE IMAGE; ORAL
     Route: 048
     Dates: start: 20110801, end: 20111016
  4. ARICEPT [Concomitant]
  5. PENCLUSIN (SENNOSIDE A + B) [Concomitant]

REACTIONS (1)
  - LOSS OF CONSCIOUSNESS [None]
